FAERS Safety Report 7978988-1 (Version None)
Quarter: 2011Q4

REPORT INFORMATION
  Report Type: 
  Country: None (occurrence: None)
  Receive Date: 20111130
  Receipt Date: 20111122
  Transmission Date: 20120403
  Serious: Yes (Hospitalization)
  Sender: FDA-Public Use
  Company Number: 2011SP002506

PATIENT
  Age: 30 Year
  Sex: Female
  Weight: 89.8122 kg

DRUGS (1)
  1. NUVARING [Suspect]
     Indication: CONTRACEPTION
     Dates: start: 20060706, end: 20061001

REACTIONS (25)
  - VULVOVAGINAL SWELLING [None]
  - EMOTIONAL DISORDER [None]
  - PRE-ECLAMPSIA [None]
  - CAESAREAN SECTION [None]
  - TUBERCULIN TEST POSITIVE [None]
  - STRESS [None]
  - ANXIETY [None]
  - WEIGHT DECREASED [None]
  - POSTPARTUM HAEMORRHAGE [None]
  - DEEP VEIN THROMBOSIS [None]
  - BACK PAIN [None]
  - BACTERIAL TOXAEMIA [None]
  - MATERNAL EXPOSURE BEFORE PREGNANCY [None]
  - NAUSEA [None]
  - INTERNATIONAL NORMALISED RATIO DECREASED [None]
  - MENTAL DISORDER [None]
  - BLOOD CHOLESTEROL INCREASED [None]
  - ASTHMA [None]
  - VULVOVAGINAL ERYTHEMA [None]
  - HEADACHE [None]
  - DIZZINESS [None]
  - INFLUENZA LIKE ILLNESS [None]
  - VULVOVAGINAL PRURITUS [None]
  - VARICOSE VEIN [None]
  - HYPERTENSION [None]
